FAERS Safety Report 6343143-8 (Version None)
Quarter: 2009Q3

REPORT INFORMATION
  Report Type: 
  Country: None (occurrence: None)
  Receive Date: 20090908
  Receipt Date: 20090831
  Transmission Date: 20100115
  Serious: Yes (Other)
  Sender: FDA-Public Use
  Company Number: US-BAYER-200931884NA

PATIENT
  Age: 33 Year
  Sex: Female

DRUGS (1)
  1. MIRENA [Suspect]
     Indication: CONTRACEPTION
     Dosage: CONTINUOUS
     Route: 015
     Dates: start: 20061025, end: 20090831

REACTIONS (3)
  - ABDOMINAL PAIN [None]
  - BLOOD HUMAN CHORIONIC GONADOTROPIN DECREASED [None]
  - PREGNANCY WITH CONTRACEPTIVE DEVICE [None]
